FAERS Safety Report 8300543-4 (Version None)
Quarter: 2012Q2

REPORT INFORMATION
  Report Type: 
  Country: None (occurrence: None)
  Receive Date: 20120420
  Receipt Date: 20120412
  Transmission Date: 20120825
  Serious: Yes (Death, Hospitalization)
  Sender: FDA-Public Use
  Company Number: US-CELGENEUS-163-21880-12041641

PATIENT
  Sex: Male
  Weight: 72.64 kg

DRUGS (11)
  1. TREANDA [Concomitant]
     Route: 041
  2. DECADRON [Concomitant]
     Route: 065
  3. THALOMID [Suspect]
     Route: 048
     Dates: start: 20111101
  4. ALLOPURINOL [Concomitant]
     Route: 065
  5. OMEPRAZOLE [Concomitant]
     Route: 065
  6. REVLIMID [Suspect]
     Dosage: 10 MILLIGRAM
     Route: 048
     Dates: start: 20101001, end: 20110101
  7. REVLIMID [Suspect]
     Dosage: 2.5 MILLIGRAM
     Route: 048
     Dates: start: 20120223
  8. THALOMID [Suspect]
     Indication: MULTIPLE MYELOMA
     Route: 048
     Dates: start: 20111001
  9. CARVEDILOL [Concomitant]
     Route: 065
  10. THALOMID [Suspect]
     Route: 048
     Dates: start: 20111201
  11. REVLIMID [Suspect]
     Indication: MULTIPLE MYELOMA
     Dosage: 15 MILLIGRAM
     Route: 048
     Dates: start: 20100401, end: 20100101

REACTIONS (2)
  - CEREBRAL HAEMORRHAGE [None]
  - THROMBOCYTOPENIA [None]
